FAERS Safety Report 23241727 (Version 5)
Quarter: 2025Q2

REPORT INFORMATION
  Report Type: Report from Study
  Country: CO (occurrence: CO)
  Receive Date: 20231129
  Receipt Date: 20250403
  Transmission Date: 20250716
  Serious: Yes (Hospitalization, Other)
  Sender: CHIESI
  Company Number: CO-AMRYT PHARMACEUTICALS DAC-AEGR006603

PATIENT
  Sex: Female

DRUGS (3)
  1. METRELEPTIN [Suspect]
     Active Substance: METRELEPTIN
     Indication: Congenital generalised lipodystrophy
     Route: 058
     Dates: start: 20230710, end: 20231121
  2. METRELEPTIN [Suspect]
     Active Substance: METRELEPTIN
     Route: 058
     Dates: start: 20230710, end: 20240112
  3. INSULIN DEGLUDEC [Suspect]
     Active Substance: INSULIN DEGLUDEC
     Indication: Diabetes mellitus
     Route: 058
     Dates: start: 2018

REACTIONS (9)
  - Generalised tonic-clonic seizure [Unknown]
  - Ascites [Unknown]
  - Vomiting [Unknown]
  - Somnolence [Unknown]
  - Hypertension [Unknown]
  - Disorientation [Unknown]
  - Prosopagnosia [Unknown]
  - Abdominal pain [Unknown]
  - Therapy cessation [Unknown]
